FAERS Safety Report 5834851-3 (Version None)
Quarter: 2008Q3

REPORT INFORMATION
  Report Type: 
  Country: None (occurrence: None)
  Receive Date: 20080728
  Receipt Date: 20080523
  Transmission Date: 20090109
  Serious: Yes (Other)
  Sender: FDA-Public Use
  Company Number: 2008US001234

PATIENT
  Sex: Female

DRUGS (2)
  1. VAPRISOL [Suspect]
     Indication: HYPONATRAEMIA
     Dosage: 20 MG, TOTAL DOSE, PARENTERAL ; 20 MG, PARENTERAL
     Route: 051
     Dates: start: 20080427, end: 20080427
  2. VAPRISOL [Suspect]
     Indication: HYPONATRAEMIA
     Dosage: 20 MG, TOTAL DOSE, PARENTERAL ; 20 MG, PARENTERAL
     Route: 051
     Dates: start: 20080428

REACTIONS (1)
  - DRUG INEFFECTIVE [None]
